FAERS Safety Report 8359143-2 (Version None)
Quarter: 2012Q2

REPORT INFORMATION
  Report Type: 
  Country: None (occurrence: None)
  Receive Date: 20120511
  Receipt Date: 20120427
  Transmission Date: 20120825
  Serious: Yes (Hospitalization)
  Sender: FDA-Public Use
  Company Number: AXC-2012-000226

PATIENT
  Age: 77 Year
  Sex: Female

DRUGS (7)
  1. URSODEOXYCHOLIC ACID (URSODEOXYCHOLIC ACID) UNKNOWN [Suspect]
     Indication: CHOLELITHIASIS
     Dosage: 300 MG, BID, ORAL
     Route: 048
     Dates: start: 20120414, end: 20120415
  2. PIPERACILLIN/TAZOBACTAM [Concomitant]
  3. SPIRIVA [Concomitant]
  4. NIDAPAMIDE (INDAPAMIDE) [Concomitant]
  5. SERETIDE /01420901/ (FLUTICASONE PROPIONATE, SALMETEROL XINAFOATE) [Concomitant]
  6. XANAX [Concomitant]
  7. LOSAPREX (LOSARTAN POTASSIUM) [Concomitant]

REACTIONS (2)
  - VISION BLURRED [None]
  - CHOLELITHIASIS [None]
